FAERS Safety Report 15619135 (Version 5)
Quarter: 2019Q1

REPORT INFORMATION
  Report Type: Spontaneous
  Country: DE (occurrence: DE)
  Receive Date: 20181114
  Receipt Date: 20190315
  Transmission Date: 20190417
  Serious: Yes (Other)
  Sender: FDA-Public Use
  Company Number: DE-ROCHE-2203620

PATIENT
  Age: 69 Year
  Sex: Female

DRUGS (15)
  1. CLONAZEPAM. [Suspect]
     Active Substance: CLONAZEPAM
     Indication: SLEEP DISORDER
     Dosage: AT NIGHT
     Route: 065
  2. BUDIPINE [Suspect]
     Active Substance: BUDIPINE
     Indication: PARKINSONISM
     Dosage: THREE TIMES A DAY (ONE AT 8:00AM, ONE AT 12:00 NOON AND ONE AT 6:00PM)
     Route: 065
  3. BUDIPINE [Suspect]
     Active Substance: BUDIPINE
     Dosage: TREATMENT CONTINUED ON 20MG THREE TIMES A DAY
     Route: 065
  4. BUDIPINE [Suspect]
     Active Substance: BUDIPINE
     Dosage: THREE TIMES A DAY (ONE AT 8:00 AM, ONE AT 12:00 NOON AND ONE AT 6:00 PM)
     Route: 065
  5. CARBIDOPA/LEVODOPA [Suspect]
     Active Substance: CARBIDOPA\LEVODOPA
     Dosage: 4 TABLETS, DAILY: 100/25 MG: 1 AT 7:00 AM, 1 AT 10:00AM, 1 AT 2:00PM AND 1 AT 6:00PM
     Route: 048
  6. CARBIDOPA/LEVODOPA [Suspect]
     Active Substance: CARBIDOPA\LEVODOPA
     Dosage: 6 TABLETS, DAILY: 1 AT 7:00 AM, 1 AT 10:00AM, 1 AT 2:00PM
     Route: 048
  7. CARBIDOPA/LEVODOPA [Suspect]
     Active Substance: CARBIDOPA\LEVODOPA
     Indication: PARKINSONISM
     Dosage: 100/25MG TABLETS FIVE TIMES A DAY (ONE TABLET AT 7:00AM, ONE TABLET AT 10:00AM, ONE TABLET AT 2:0?LA
     Route: 048
  8. LORAZEPAM. [Concomitant]
     Active Substance: LORAZEPAM
     Indication: HYPOTHYROIDISM
  9. BUDIPINE [Suspect]
     Active Substance: BUDIPINE
     Dosage: 20 MG: 1 AT 8:00AM, 1 AT 12:00 PM, 1 AT 6:00PM
     Route: 065
  10. PRAMIPEXOLE. [Suspect]
     Active Substance: PRAMIPEXOLE
     Indication: PARKINSON^S DISEASE
     Route: 065
  11. LORAZEPAM. [Concomitant]
     Active Substance: LORAZEPAM
     Indication: DEPRESSION
     Dosage: 0.5 TO 2 TABLETS (1 MG) PER DAY AS NEEDED
     Route: 065
  12. LEVOTHYROXINE SODIUM. [Concomitant]
     Active Substance: LEVOTHYROXINE SODIUM
     Indication: HYPOTHYROIDISM
     Dosage: 1/2 A DAY AT 7:00 AM
     Route: 065
  13. LEVOTHYROXINE SODIUM. [Concomitant]
     Active Substance: LEVOTHYROXINE SODIUM
     Dosage: 1/2 A DAY AT 7:00 AM
     Route: 065
  14. RAMIPRIL. [Concomitant]
     Active Substance: RAMIPRIL
     Indication: HYPERTENSION
     Dosage: TREATMENT CHANGED FOM ONCE IN THE EVENING AT 6:00 PM TO ONE IN THE MORNING AT 7:00 AM
     Route: 065
  15. PROPRANOLOL [Concomitant]
     Active Substance: PROPRANOLOL HYDROCHLORIDE
     Indication: HYPERTENSION
     Route: 065

REACTIONS (11)
  - Psychotic symptom [Unknown]
  - Depressive symptom [Unknown]
  - Delirium [Unknown]
  - Off label use [Unknown]
  - On and off phenomenon [Unknown]
  - Hallucination [Unknown]
  - Dizziness [Unknown]
  - Mobility decreased [Unknown]
  - Psychotic disorder [Unknown]
  - Fatigue [Unknown]
  - Product use in unapproved indication [Unknown]
